FAERS Safety Report 16890111 (Version 1)
Quarter: 2019Q4

REPORT INFORMATION
  Report Type: Spontaneous
  Country: US (occurrence: US)
  Receive Date: 20191004
  Receipt Date: 20191004
  Transmission Date: 20200122
  Serious: Yes (Other)
  Sender: FDA-Public Use
  Company Number: None

PATIENT
  Age: 36 Year
  Sex: Male
  Weight: 103.5 kg

DRUGS (4)
  1. 1000 MG VITAMIN C + BIOFLAVONOIDS [Concomitant]
  2. 1200 OMEGA 3 + 100MG COQ10 [Concomitant]
  3. NITROFURANTOIN MONOHYDRATE MACROCRYSTALS [Suspect]
     Active Substance: NITROFURANTOIN\NITROFURANTOIN MONOHYDRATE
     Indication: URINARY TRACT INFECTION
     Dosage: ?          QUANTITY:1 CAPSULE(S);?
     Route: 048
     Dates: start: 20191003, end: 20191004
  4. KIRKLAND^S ORGANIC MEN^S MULTIVITAMIN [Concomitant]

REACTIONS (5)
  - Hypoaesthesia [None]
  - Limb injury [None]
  - Confusional state [None]
  - Paraesthesia [None]
  - Middle insomnia [None]

NARRATIVE: CASE EVENT DATE: 20191004
